FAERS Safety Report 12883308 (Version 1)
Quarter: 2016Q4

REPORT INFORMATION
  Report Type: Spontaneous
  Country: US (occurrence: None)
  Receive Date: 20161024
  Receipt Date: 20161024
  Transmission Date: 20170207
  Serious: Yes (Congenital Anomaly, Other)
  Sender: FDA-Public Use
  Company Number: US2016K6050LIT

PATIENT
  Age: 2 Year

DRUGS (1)
  1. ENALAPRIL WORLD (ENALAPRIL) UNKNOWN [Suspect]
     Active Substance: ENALAPRIL
     Indication: DIABETES MELLITUS
     Route: 064

REACTIONS (3)
  - Angiotensin converting enzyme inhibitor foetopathy [None]
  - Foetal exposure during pregnancy [None]
  - Foetal disorder [None]
